FAERS Safety Report 4522089-1 (Version None)
Quarter: 2004Q4

REPORT INFORMATION
  Report Type: 
  Country: None (occurrence: None)
  Receive Date: 20041209
  Receipt Date: 20041130
  Transmission Date: 20050328
  Serious: Yes (Hospitalization)
  Sender: FDA-Public Use
  Company Number: NO-MERCK-0412NOR00009

PATIENT
  Age: 11 Year
  Sex: Female

DRUGS (9)
  1. VIOXX [Suspect]
     Indication: JUVENILE ARTHRITIS
     Route: 048
     Dates: start: 20010201, end: 20040301
  2. ACETAMINOPHEN [Concomitant]
     Indication: JUVENILE ARTHRITIS
     Route: 065
     Dates: start: 20030101
  3. SOMATROPIN [Concomitant]
     Indication: BLOOD GROWTH HORMONE ABNORMAL
     Route: 065
  4. CALCIUM CARBONATE [Concomitant]
     Route: 065
  5. CETIRIZINE HYDROCHLORIDE [Concomitant]
     Indication: HYPERSENSITIVITY
     Route: 048
  6. ETANERCEPT [Concomitant]
     Indication: JUVENILE ARTHRITIS
     Route: 058
  7. METHOTREXATE [Concomitant]
     Indication: JUVENILE ARTHRITIS
     Route: 058
  8. OMEPRAZOLE MAGNESIUM [Concomitant]
     Indication: GASTROOESOPHAGEAL REFLUX DISEASE
     Route: 048
  9. FOLIC ACID [Concomitant]
     Indication: JUVENILE ARTHRITIS
     Route: 048

REACTIONS (15)
  - ABDOMINAL DISCOMFORT [None]
  - ABDOMINAL PAIN [None]
  - BLOOD ALKALINE PHOSPHATASE INCREASED [None]
  - BLOOD CALCIUM DECREASED [None]
  - CONDITION AGGRAVATED [None]
  - DIZZINESS [None]
  - ERYTHEMA [None]
  - HEADACHE [None]
  - HYPERHIDROSIS [None]
  - MUSCLE RIGIDITY [None]
  - PALLOR [None]
  - PALPITATIONS [None]
  - RHEUMATOID ARTHRITIS [None]
  - SKIN SWELLING [None]
  - WHITE BLOOD CELL COUNT DECREASED [None]
